FAERS Safety Report 19240532 (Version 8)
Quarter: 2023Q2

REPORT INFORMATION
  Report Type: Report from Study
  Country: US (occurrence: US)
  Receive Date: 20210511
  Receipt Date: 20230407
  Transmission Date: 20230721
  Serious: No
  Sender: FDA-Public Use
  Company Number: US-ACADIA PHARMACEUTICALS INC.-ACA-2021-PIM-001454

PATIENT
  Sex: Male

DRUGS (4)
  1. NUPLAZID [Suspect]
     Active Substance: PIMAVANSERIN TARTRATE
     Indication: Parkinson^s disease psychosis
     Dosage: 34 MILLIGRAM, QD
     Route: 048
     Dates: start: 20210325
  2. NUPLAZID [Suspect]
     Active Substance: PIMAVANSERIN TARTRATE
     Indication: Hallucination
  3. NUPLAZID [Suspect]
     Active Substance: PIMAVANSERIN TARTRATE
     Indication: Delusion
  4. MIDODRINE [Suspect]
     Active Substance: MIDODRINE
     Dosage: UNK

REACTIONS (17)
  - Dehydration [Unknown]
  - Dehydration [Unknown]
  - Balance disorder [Unknown]
  - General physical condition abnormal [Unknown]
  - Mental disorder [Unknown]
  - Balance disorder [Recovering/Resolving]
  - Dizziness [Unknown]
  - Feeling jittery [Unknown]
  - Paranoia [Unknown]
  - Therapeutic product effect decreased [Unknown]
  - Hallucination [Recovering/Resolving]
  - Peripheral swelling [Recovering/Resolving]
  - Peripheral swelling [Unknown]
  - Hallucination [Unknown]
  - Peripheral swelling [Unknown]
  - Hallucination [Recovering/Resolving]
  - Hallucination [Unknown]

NARRATIVE: CASE EVENT DATE: 20210101
